FAERS Safety Report 9228052 (Version 2)
Quarter: 2013Q3

REPORT INFORMATION
  Report Type: Spontaneous
  Country: US (occurrence: US)
  Receive Date: 20130412
  Receipt Date: 20130712
  Transmission Date: 20140515
  Serious: Yes (Other)
  Sender: FDA-Public Use
  Company Number: US-GLAXOSMITHKLINE-A1011259A

PATIENT
  Age: 55 Year
  Sex: Male
  Weight: 78.6 kg

DRUGS (2)
  1. JALYN [Suspect]
     Indication: BENIGN PROSTATIC HYPERPLASIA
     Route: 048
     Dates: start: 20130124, end: 20130125
  2. NO CONCURRENT MEDICATION [Concomitant]

REACTIONS (1)
  - Priapism [Recovered/Resolved]
